FAERS Safety Report 18494600 (Version 3)
Quarter: 2020Q4

REPORT INFORMATION
  Report Type: Spontaneous
  Country: US (occurrence: US)
  Receive Date: 20201112
  Receipt Date: 20201221
  Transmission Date: 20210114
  Serious: Yes (Other)
  Sender: FDA-Public Use
  Company Number: US-GW PHARMA-202011USGW03842

PATIENT

DRUGS (26)
  1. EPIDIOLEX [Suspect]
     Active Substance: CANNABIDIOL
     Dosage: 7.8 MG/KG/DAY, 250 MILLIGRAM, BID
     Dates: start: 20201020, end: 20201102
  2. SEBULEX [SALICYLIC ACID;SULFUR] [Concomitant]
     Indication: PRODUCT USED FOR UNKNOWN INDICATION
     Dosage: 1 APPLICATION, THREE TIMES PER WEEK AT 8 PM
     Route: 061
     Dates: start: 20191115
  3. FLEET ENEMA [Concomitant]
     Active Substance: SODIUM PHOSPHATE, DIBASIC\SODIUM PHOSPHATE, MONOBASIC
     Indication: CONSTIPATION
     Dosage: 1 ENM RECTAL. Q4TH DAY PRN
     Route: 054
     Dates: start: 20180726
  4. TYLENOL [Concomitant]
     Active Substance: ACETAMINOPHEN
     Indication: DISCOMFORT
  5. MIRALAX [Concomitant]
     Active Substance: POLYETHYLENE GLYCOL 3350
     Indication: PRODUCT USED FOR UNKNOWN INDICATION
     Dosage: 8.5 MILLIGRAM, QD (0.5 CAPFUL, 1 TABLE SPOONFUL DAILY AT 7PM-DISSOLVE IN 8OZ OF LIQUID)
     Dates: start: 20180726
  6. COLLAGENASE SANTYL [Concomitant]
     Active Substance: COLLAGENASE CLOSTRIDIUM HISTOLYTICUM
     Indication: SYNDACTYLY
     Dosage: 1 APPLICATION, PRN UNTIL HEALED
     Route: 061
     Dates: start: 20180726
  7. EPIDIOLEX [Suspect]
     Active Substance: CANNABIDIOL
     Indication: LENNOX-GASTAUT SYNDROME
     Dosage: 3.12 MG/KG/DAY, 100 MILLIGRAM, BID
     Dates: start: 20201005, end: 202010
  8. EPIDIOLEX [Suspect]
     Active Substance: CANNABIDIOL
     Indication: EPILEPSY
     Dosage: 6.25 MG/KG/DAY, 200 MILLIGRAM, BID
     Dates: start: 202010, end: 20201019
  9. FISH OIL [Concomitant]
     Active Substance: FISH OIL
     Indication: PRODUCT USED FOR UNKNOWN INDICATION
     Dosage: 1000.06 MILLIGRAM, BID (3.1ML/ 8AM-7PM)
     Dates: start: 20190903
  10. KEPPRA [Concomitant]
     Active Substance: LEVETIRACETAM
     Indication: PRODUCT USED FOR UNKNOWN INDICATION
     Dosage: 1500 MILLIGRAM, BID (8AM-7PM)
     Dates: start: 20180726
  11. SYNTHROID [Concomitant]
     Active Substance: LEVOTHYROXINE SODIUM
     Indication: PRODUCT USED FOR UNKNOWN INDICATION
     Dosage: 0.175 MILLIGRAM, QD (12N)
     Dates: start: 20200212
  12. ATIVAN [Concomitant]
     Active Substance: LORAZEPAM
     Indication: SEIZURE
     Dosage: NO MORE THAN 1 MG IN 4 HOURS, AS NEEDED
     Route: 030
     Dates: start: 20200904
  13. TYLENOL [Concomitant]
     Active Substance: ACETAMINOPHEN
     Indication: PYREXIA
     Dosage: 650 MILLIGRAM, TID (8AM-12N-7PM FOR 3 DAYS)
     Dates: start: 20160809
  14. CHOLECALCIFEROL [Concomitant]
     Active Substance: CHOLECALCIFEROL
     Indication: PRODUCT USED FOR UNKNOWN INDICATION
     Dosage: 400 INTERNATIONAL UNIT, QD (8AM)
     Dates: start: 20180727
  15. COPPER GLUCONATE [Concomitant]
     Active Substance: COPPER GLUCONATE
     Indication: PRODUCT USED FOR UNKNOWN INDICATION
     Dosage: 2 MILLIGRAM, QD (AT 8PM)
     Dates: start: 20180826
  16. NEXIUM I.V. [Concomitant]
     Active Substance: ESOMEPRAZOLE SODIUM
     Indication: PRODUCT USED FOR UNKNOWN INDICATION
     Dosage: 40 MILLIGRAM, QD (AT 8AM, EMPTY CONTENTS IN SYRINGE AND MIX WITH 25-50 ML WATER.)
     Dates: start: 20200812
  17. SELENIUM [Concomitant]
     Active Substance: SELENIUM
     Indication: PRODUCT USED FOR UNKNOWN INDICATION
     Dosage: 200 MICROGRAM, QD (AT 7PM)
     Dates: start: 20180726
  18. SENOKOT [Concomitant]
     Active Substance: SENNOSIDES
     Indication: PRODUCT USED FOR UNKNOWN INDICATION
     Dosage: 17.6 MILLIGRAM, QD (7PM)
     Dates: start: 20180726
  19. DEPAKENE [Concomitant]
     Active Substance: VALPROIC ACID
     Indication: PRODUCT USED FOR UNKNOWN INDICATION
     Dosage: 500 MILLIGRAM, TID (8AM-12N-7PM)
     Dates: start: 20180726
  20. PERSA-GEL W [Concomitant]
     Indication: PRODUCT USED FOR UNKNOWN INDICATION
     Dosage: TO FACE AND SHOULDER DAILY AT 7 PM
     Route: 061
     Dates: start: 20190305
  21. ZINC GLUCONATE [Concomitant]
     Active Substance: ZINC GLUCONATE
     Indication: PRODUCT USED FOR UNKNOWN INDICATION
     Dosage: 50 MILLIGRAM, BID (8AM-7PM)
     Dates: start: 20180726
  22. SUMMERS EVE [Concomitant]
     Active Substance: POVIDONE-IODINE
     Indication: PRODUCT USED FOR UNKNOWN INDICATION
     Dosage: APPLY DAILY AT 8 PM AT BATHTIME
     Route: 061
     Dates: start: 20191115
  23. CALCIUM CARBONATE. [Concomitant]
     Active Substance: CALCIUM CARBONATE
     Indication: PRODUCT USED FOR UNKNOWN INDICATION
     Dosage: 1250 MILLIGRAM, QD (AT 7PM)
     Dates: start: 20200812
  24. RECLAST [Concomitant]
     Active Substance: ZOLEDRONIC ACID
     Indication: PRODUCT USED FOR UNKNOWN INDICATION
     Dosage: 5 MILLIGRAM BI ANNUAL INFUSION
     Route: 042
     Dates: start: 20160809
  25. MILK OF MAGNESIA [Concomitant]
     Active Substance: MAGNESIUM HYDROXIDE
     Indication: CONSTIPATION
     Dosage: 2400 MILLIGRAM, PRN (EVERY 3 DAYS AS NEEDED)
     Dates: start: 20200811
  26. NEUTROGENA SOAP [Concomitant]
     Indication: ACNE
     Dosage: 1 APPLICATION, TOPICAL (DAILY AT 8PM)
     Route: 061
     Dates: start: 20191115

REACTIONS (3)
  - Erythema multiforme [Recovering/Resolving]
  - Rash papular [Recovering/Resolving]
  - Blister [Recovering/Resolving]

NARRATIVE: CASE EVENT DATE: 20201027
